FAERS Safety Report 10617708 (Version 5)
Quarter: 2016Q1

REPORT INFORMATION
  Report Type: Spontaneous
  Country: US (occurrence: US)
  Receive Date: 20141201
  Receipt Date: 20160219
  Transmission Date: 20160525
  Serious: Yes (Other)
  Sender: FDA-Public Use
  Company Number: US-GLAXOSMITHKLINE-US2014GSK029220

PATIENT
  Sex: Female
  Weight: 74.83 kg

DRUGS (1)
  1. BENLYSTA [Suspect]
     Active Substance: BELIMUMAB
     Indication: SYSTEMIC LUPUS ERYTHEMATOSUS
     Dosage: UNK, U
     Route: 042
     Dates: start: 201201

REACTIONS (4)
  - Therapeutic response unexpected [Unknown]
  - Blood test abnormal [Unknown]
  - Renal impairment [Unknown]
  - Adverse event [Unknown]
